FAERS Safety Report 21419966 (Version 1)
Quarter: 2022Q4

REPORT INFORMATION
  Report Type: Spontaneous
  Country: GB (occurrence: GB)
  Receive Date: 20221007
  Receipt Date: 20221007
  Transmission Date: 20230113
  Serious: Yes (Disabling)
  Sender: FDA-Public Use
  Company Number: GB-MHRA-EMIS-1067-d882e4b2-039d-41e3-acf7-ce8947e5addc

PATIENT
  Age: 64 Year
  Sex: Male
  Weight: 83 kg

DRUGS (1)
  1. SILDENAFIL [Suspect]
     Active Substance: SILDENAFIL
     Indication: Product used for unknown indication
     Dosage: ONE TO BE TAKEN AS DIRECTED
     Dates: start: 20220701, end: 20220831

REACTIONS (1)
  - Hypoacusis [Unknown]
